FAERS Safety Report 5632282-2 (Version None)
Quarter: 2008Q1

REPORT INFORMATION
  Report Type: 
  Country: None (occurrence: None)
  Receive Date: 20080212
  Receipt Date: 20080128
  Transmission Date: 20080703
  Serious: Yes (Hospitalization)
  Sender: FDA-Public Use
  Company Number: 2008S1001551

PATIENT
  Age: 20 Year
  Sex: Female

DRUGS (2)
  1. DOXYCYCLINE HCL [Suspect]
     Indication: ADNEXITIS
     Dosage: 200 MG; ORAL
     Route: 048
     Dates: start: 20080115, end: 20080117
  2. ORAL CONTRACEPTIVE NOS [Concomitant]

REACTIONS (4)
  - CHEST PAIN [None]
  - EPILEPSY [None]
  - NAUSEA [None]
  - TACHYCARDIA [None]
